FAERS Safety Report 13578133 (Version 1)
Quarter: 2017Q2

REPORT INFORMATION
  Report Type: Spontaneous
  Country: US (occurrence: US)
  Receive Date: 20170524
  Receipt Date: 20170524
  Transmission Date: 20170830
  Serious: No
  Sender: FDA-Public Use
  Company Number: US-BAYER-2017-086371

PATIENT
  Sex: Female
  Weight: 62 kg

DRUGS (1)
  1. CLARITIN [Suspect]
     Active Substance: LORATADINE
     Dosage: 1 DF, WITH A GLASS OF WATER
     Route: 048
     Dates: start: 20170503, end: 20170504

REACTIONS (4)
  - Nasal discomfort [Unknown]
  - Sneezing [Unknown]
  - Drug ineffective [Unknown]
  - Drug ineffective [Unknown]

NARRATIVE: CASE EVENT DATE: 20170503
